FAERS Safety Report 20410961 (Version 1)
Quarter: 2022Q1

REPORT INFORMATION
  Report Type: Spontaneous
  Country: US (occurrence: None)
  Receive Date: 20220131
  Receipt Date: 20220131
  Transmission Date: 20220423
  Serious: No
  Sender: FDA-Public Use
  Company Number: None

PATIENT
  Age: 73 Year
  Sex: Male

DRUGS (1)
  1. SEMAGLUTIDE [Suspect]
     Active Substance: SEMAGLUTIDE
     Dosage: OTHER QUANTITY : .25MG;?FREQUENCY : WEEKLY;?
     Route: 058
     Dates: start: 20200710, end: 20210711

REACTIONS (1)
  - Rash [None]

NARRATIVE: CASE EVENT DATE: 20211109
